FAERS Safety Report 17767488 (Version 5)
Quarter: 2023Q1

REPORT INFORMATION
  Report Type: Report from Study
  Country: CR (occurrence: CR)
  Receive Date: 20200511
  Receipt Date: 20230209
  Transmission Date: 20230417
  Serious: Yes (Other)
  Sender: FDA-Public Use
  Company Number: PHHY2016CR140743

PATIENT
  Sex: Female

DRUGS (5)
  1. EXFORGE HCT [Suspect]
     Active Substance: AMLODIPINE BESYLATE\HYDROCHLOROTHIAZIDE\VALSARTAN
     Indication: Hypertension
     Dosage: UNK UNK, BID (5/160/12.5 MG)
     Route: 048
  2. EXFORGE [Suspect]
     Active Substance: AMLODIPINE BESYLATE\VALSARTAN
     Indication: Hypertension
     Dosage: UNK Q12H (160/5 MG)
     Route: 048
     Dates: end: 20230128
  3. EXFORGE [Suspect]
     Active Substance: AMLODIPINE BESYLATE\VALSARTAN
     Dosage: UNK, QD (10/320MG)
     Route: 048
     Dates: start: 20230128
  4. IRBESARTAN [Suspect]
     Active Substance: IRBESARTAN
     Indication: Product used for unknown indication
     Dosage: UNK
     Route: 065
  5. BISOPROLOL FUMARATE [Concomitant]
     Active Substance: BISOPROLOL FUMARATE
     Indication: Thyroid disorder
     Dosage: UNK
     Route: 065

REACTIONS (9)
  - Blood pressure systolic increased [Recovering/Resolving]
  - Blood sodium decreased [Recovering/Resolving]
  - Memory impairment [Unknown]
  - Communication disorder [Unknown]
  - Blood pressure fluctuation [Recovering/Resolving]
  - Heart rate decreased [Recovering/Resolving]
  - Neuralgia [Recovering/Resolving]
  - Drug ineffective [Unknown]
  - Inappropriate schedule of product administration [Unknown]
